FAERS Safety Report 5364384-2 (Version None)
Quarter: 2007Q2

REPORT INFORMATION
  Report Type: 
  Country: None (occurrence: None)
  Receive Date: 20070618
  Receipt Date: 20070604
  Transmission Date: 20071010
  Serious: Yes (Other)
  Sender: FDA-Public Use
  Company Number: SPI200700327

PATIENT
  Age: 39 Year
  Sex: Female

DRUGS (8)
  1. AMITIZA [Suspect]
     Indication: CONSTIPATION
     Dosage: 24 MCG, BID, ORAL
     Route: 048
     Dates: start: 20070425, end: 20070430
  2. ZELNORM [Concomitant]
  3. ELAVIL [Concomitant]
  4. MORPHINE SULFATE [Concomitant]
  5. MS CONTIN [Concomitant]
  6. ZANAFLEX [Concomitant]
  7. KLONOPIN [Concomitant]
  8. PROZAC [Concomitant]

REACTIONS (3)
  - OEDEMA PERIPHERAL [None]
  - PAIN [None]
  - URTICARIA [None]
